FAERS Safety Report 11393616 (Version 1)
Quarter: 2015Q3

REPORT INFORMATION
  Report Type: Spontaneous
  Country: US (occurrence: US)
  Receive Date: 20150819
  Receipt Date: 20150819
  Transmission Date: 20151125
  Serious: Yes (Hospitalization)
  Sender: FDA-Public Use
  Company Number: US-ROCHE-1620060

PATIENT
  Sex: Female

DRUGS (1)
  1. VALIUM [Suspect]
     Active Substance: DIAZEPAM
     Indication: PRODUCT USED FOR UNKNOWN INDICATION
     Route: 065
     Dates: start: 20150808

REACTIONS (7)
  - Migraine [Unknown]
  - Insomnia [Not Recovered/Not Resolved]
  - Shock [Unknown]
  - Drug ineffective [Unknown]
  - Burning sensation [Unknown]
  - Hypotension [Unknown]
  - Myalgia [Not Recovered/Not Resolved]
